FAERS Safety Report 7764610-6 (Version None)
Quarter: 2011Q3

REPORT INFORMATION
  Report Type: 
  Country: None (occurrence: None)
  Receive Date: 20110921
  Receipt Date: 20110912
  Transmission Date: 20111222
  Serious: Yes (Other)
  Sender: FDA-Public Use
  Company Number: PHEH2011US01667

PATIENT
  Sex: Male

DRUGS (5)
  1. LIPITOR [Concomitant]
  2. TASIGNA [Suspect]
     Indication: LEUKAEMIA
     Dosage: 400 MG, BID
     Route: 048
     Dates: start: 20100126
  3. ATENOLOL [Concomitant]
  4. TASIGNA [Suspect]
     Dosage: 200 MG, BID
     Route: 048
  5. DAILY VITAMINS [Concomitant]

REACTIONS (2)
  - WHITE BLOOD CELL COUNT DECREASED [None]
  - LEUKAEMIA RECURRENT [None]
